FAERS Safety Report 4519238-8 (Version None)
Quarter: 2004Q4

REPORT INFORMATION
  Report Type: 
  Country: None (occurrence: None)
  Receive Date: 20041201
  Receipt Date: 20041117
  Transmission Date: 20050328
  Serious: Yes (Hospitalization)
  Sender: FDA-Public Use
  Company Number: 200410582BYL

PATIENT
  Age: 53 Year
  Sex: Female
  Weight: 60 kg

DRUGS (13)
  1. GLUCOBAY [Suspect]
     Indication: DIABETES MELLITUS NON-INSULIN-DEPENDENT
     Dosage: 100 MG TID ORAL; 300 MG TOTAL DAILY ORAL; 300 MG TOTAL DAILY ORAL
     Route: 048
     Dates: start: 20040405, end: 20040921
  2. GLUCOBAY [Suspect]
     Indication: DIABETES MELLITUS NON-INSULIN-DEPENDENT
     Dosage: 100 MG TID ORAL; 300 MG TOTAL DAILY ORAL; 300 MG TOTAL DAILY ORAL
     Route: 048
     Dates: start: 20030612
  3. GLUCOBAY [Suspect]
     Indication: DIABETES MELLITUS NON-INSULIN-DEPENDENT
     Dosage: 100 MG TID ORAL; 300 MG TOTAL DAILY ORAL; 300 MG TOTAL DAILY ORAL
     Route: 048
     Dates: start: 20040107
  4. LIPITOR [Suspect]
     Indication: HYPERCHOLESTEROLAEMIA
     Dosage: 10 MG OM ORAL; 10 MG TOTAL DAILY ORAL; 10 MG TOTAL DAILY ORAL
     Route: 048
     Dates: start: 20040405, end: 20040723
  5. LIPITOR [Suspect]
     Indication: HYPERCHOLESTEROLAEMIA
     Dosage: 10 MG OM ORAL; 10 MG TOTAL DAILY ORAL; 10 MG TOTAL DAILY ORAL
     Route: 048
     Dates: start: 20030612
  6. LIPITOR [Suspect]
     Indication: HYPERCHOLESTEROLAEMIA
     Dosage: 10 MG OM ORAL; 10 MG TOTAL DAILY ORAL; 10 MG TOTAL DAILY ORAL
     Route: 048
     Dates: start: 20040107
  7. ANTIALLERGIC AGENTS (DECONGESTANTS AND ANTIALLERGICS) [Suspect]
     Dates: start: 20031001
  8. MICARDIS [Concomitant]
  9. LANSOPRAZOLE [Concomitant]
  10. PROMAC [Concomitant]
  11. GASTROM [Concomitant]
  12. URSO [Concomitant]
  13. ACINON [Concomitant]

REACTIONS (6)
  - ALANINE AMINOTRANSFERASE INCREASED [None]
  - ASPARTATE AMINOTRANSFERASE INCREASED [None]
  - DISEASE PROGRESSION [None]
  - GAMMA-GLUTAMYLTRANSFERASE INCREASED [None]
  - HAEMATEMESIS [None]
  - LIVER DISORDER [None]
